FAERS Safety Report 13247318 (Version 1)
Quarter: 2017Q1

REPORT INFORMATION
  Report Type: Spontaneous
  Country: JP (occurrence: JP)
  Receive Date: 20170217
  Receipt Date: 20170217
  Transmission Date: 20170428
  Serious: Yes (Hospitalization)
  Sender: FDA-Public Use
  Company Number: JP-DSJP-DSJ-2017-104991

PATIENT

DRUGS (1)
  1. LIXIANA TABLETS 30MG [Suspect]
     Active Substance: EDOXABAN TOSILATE MONOHYDRATE
     Indication: PRODUCT USED FOR UNKNOWN INDICATION
     Dosage: 30 MG, UNK
     Route: 048
     Dates: start: 20161215, end: 20170130

REACTIONS (1)
  - Duodenal ulcer [Unknown]

NARRATIVE: CASE EVENT DATE: 20170130
